FAERS Safety Report 7618444-3 (Version None)
Quarter: 2011Q3

REPORT INFORMATION
  Report Type: 
  Country: None (occurrence: None)
  Receive Date: 20110718
  Receipt Date: 20110711
  Transmission Date: 20111222
  Serious: Yes (Hospitalization, Other)
  Sender: FDA-Public Use
  Company Number: US-BAYER-2011-032281

PATIENT
  Age: 85 Year
  Sex: Female
  Weight: 68.027 kg

DRUGS (25)
  1. ACETYLSALICYLIC ACID SRT [Concomitant]
     Indication: GENERAL SYMPTOM
     Dosage: 81 MG, UNK
     Dates: start: 20110420
  2. DURAGESIC-100 [Concomitant]
     Dosage: 25 ?G/H, Q72HR
     Route: 061
     Dates: start: 20110527
  3. GLUCOSAMINE [Concomitant]
     Indication: OSTEOARTHRITIS
     Dosage: 500 MG, QD
     Route: 048
     Dates: start: 20110420
  4. DURAGESIC-100 [Concomitant]
     Dosage: 12.5 ?G/H, Q72HR
     Route: 061
     Dates: start: 20110603
  5. GLYBURIDE [Concomitant]
     Indication: HYPERTENSION
     Dosage: 10 MG, BID
     Route: 048
     Dates: start: 20110420
  6. SINGULAIR [Concomitant]
     Indication: RHINITIS ALLERGIC
     Dosage: 10 MG, QD
     Route: 048
     Dates: start: 20110420
  7. MULTI-VITAMIN [Concomitant]
     Indication: HYPOVITAMINOSIS
     Dosage: UNK UNK, QD
     Route: 048
     Dates: start: 20110420
  8. FLEXERIL [Concomitant]
     Dosage: 10 MG, Q 6 HOURS PRN
     Route: 048
     Dates: start: 20110531
  9. ACTOS [Concomitant]
     Dosage: 15 MG, QD
     Route: 048
     Dates: start: 20110420
  10. GLIMEPIRIDE [Concomitant]
     Dosage: 4 MG, UNK
     Dates: start: 20110420
  11. LOPRESSOR [Concomitant]
     Indication: HYPERTENSION
     Dosage: 50 MG, BID
     Route: 048
     Dates: start: 20110420
  12. MICARDIS [Concomitant]
     Indication: HYPERTENSION
     Dosage: ^80/12.5 MG, QD
     Route: 048
     Dates: start: 20110420
  13. PHENERGAN HCL [Concomitant]
     Indication: NAUSEA
     Dosage: 12.5 MG, PRN Q4H
     Dates: start: 20110425
  14. NEXAVAR [Suspect]
     Indication: HEPATIC NEOPLASM MALIGNANT
     Dosage: 200 MG, BID
     Route: 048
     Dates: start: 20110405, end: 20110412
  15. ZOFRAN [Concomitant]
     Indication: VOMITING
  16. MECLIZINE [Concomitant]
     Indication: DIZZINESS
     Dosage: 25 MG, HS
     Route: 048
     Dates: start: 20110420
  17. PERCOCET [Concomitant]
     Indication: OSTEOARTHRITIS
     Dosage: 5/235 MG Q4H, PRN
     Route: 048
     Dates: start: 20110428
  18. MABEX (SWICH AND SPIT) [Concomitant]
     Dosage: 5-10 CC PRN
     Dates: start: 20110531
  19. AMBIEN [Concomitant]
     Indication: INSOMNIA
     Dosage: 5 MG, HS
     Route: 048
     Dates: start: 20110420
  20. MECLIZINE [Concomitant]
  21. PEPCID [Concomitant]
     Indication: GASTROOESOPHAGEAL REFLUX DISEASE
     Dosage: 20 MG, HS
     Route: 048
     Dates: start: 20110426
  22. ZOFRAN [Concomitant]
     Indication: NAUSEA
     Dosage: 4 MG (1-2) , PRN Q6H
     Route: 048
     Dates: start: 20110428
  23. ACCU CHECK [Concomitant]
     Indication: DIABETES MELLITUS
     Dosage: 6 AM AND 4 PM
     Dates: start: 20110420
  24. BENADRYL [Concomitant]
     Indication: GENERAL SYMPTOM
     Dosage: 25 MG, PRN Q 4H
     Route: 048
     Dates: start: 20110420
  25. PHENERGAN HCL [Concomitant]
     Indication: VOMITING

REACTIONS (8)
  - CLOSTRIDIUM DIFFICILE COLITIS [None]
  - DIARRHOEA [None]
  - CONFUSIONAL STATE [None]
  - ASTHENIA [None]
  - IMPAIRED SELF-CARE [None]
  - DEHYDRATION [None]
  - URINARY TRACT INFECTION [None]
  - GLOSSODYNIA [None]
